FAERS Safety Report 9773151 (Version 2)
Quarter: 2014Q1

REPORT INFORMATION
  Report Type: Spontaneous
  Country: US (occurrence: US)
  Receive Date: 20131219
  Receipt Date: 20140102
  Transmission Date: 20141002
  Serious: No
  Sender: FDA-Public Use
  Company Number: US-009507513-1312USA005633

PATIENT
  Sex: Female

DRUGS (2)
  1. NASONEX [Suspect]
     Indication: HYPERSENSITIVITY
     Dosage: 1 SPRAY EACH NOSTRIL ONCE DAILY
     Route: 045
     Dates: start: 201308, end: 20131211
  2. NASONEX [Suspect]
     Dosage: UNK
     Dates: start: 201205

REACTIONS (6)
  - Pharyngeal ulceration [Recovered/Resolved]
  - Tongue ulceration [Recovered/Resolved]
  - Nasal ulcer [Recovered/Resolved]
  - Pharyngeal ulceration [Recovered/Resolved]
  - Tongue ulceration [Recovered/Resolved]
  - Nasal ulcer [Recovered/Resolved]
